FAERS Safety Report 9532231 (Version 1)
Quarter: 2013Q3

REPORT INFORMATION
  Report Type: Spontaneous
  Country: US (occurrence: US)
  Receive Date: 20130918
  Receipt Date: 20130918
  Transmission Date: 20140515
  Serious: Yes (Other)
  Sender: FDA-Public Use
  Company Number: US-B.I. PHARMACEUTICALS,INC./RIDGEFIELD-2013-BI-28858GD

PATIENT
  Sex: Female

DRUGS (3)
  1. PRAMIPEXOLE [Suspect]
     Indication: RESTLESS LEGS SYNDROME
     Dosage: 0.5 MG
  2. PRAMIPEXOLE [Suspect]
     Dosage: 0.75 MG
  3. PRAMIPEXOLE [Suspect]
     Dosage: 2 MG

REACTIONS (2)
  - Restless legs syndrome [Recovered/Resolved]
  - Somnolence [Unknown]
